FAERS Safety Report 6969121-3 (Version None)
Quarter: 2010Q3

REPORT INFORMATION
  Report Type: 
  Country: None (occurrence: None)
  Receive Date: 20100907
  Receipt Date: 20100826
  Transmission Date: 20110219
  Serious: Yes (Hospitalization)
  Sender: FDA-Public Use
  Company Number: GXKR2010US09717

PATIENT
  Age: 11 Month
  Sex: Female

DRUGS (2)
  1. PROPRANOLOL [Suspect]
     Indication: HAEMANGIOMA
     Dosage: TITRATED UP FROM 0.3 MG/KG/DAY TO 2 MG/KG/DAY OVER 12 DAYS
     Route: 048
  2. PROPRANOLOL [Suspect]
     Dosage: 2 MG/KG, Q8H
     Route: 048

REACTIONS (5)
  - COLD SWEAT [None]
  - FEELING COLD [None]
  - HYPOGLYCAEMIA [None]
  - PALLOR [None]
  - UNRESPONSIVE TO STIMULI [None]
